FAERS Safety Report 24595117 (Version 2)
Quarter: 2024Q4

REPORT INFORMATION
  Report Type: Spontaneous
  Country: DE (occurrence: DE)
  Receive Date: 20241108
  Receipt Date: 20241113
  Transmission Date: 20250115
  Serious: Yes (Death)
  Sender: REGENERON
  Company Number: None

PATIENT
  Age: 94 Year
  Sex: Female

DRUGS (1)
  1. LIBTAYO [Suspect]
     Active Substance: CEMIPLIMAB-RWLC
     Indication: Neoplasm malignant
     Dosage: 350 MG
     Dates: start: 20241025, end: 20241025

REACTIONS (1)
  - Death [Fatal]

NARRATIVE: CASE EVENT DATE: 20241028
